FAERS Safety Report 24320905 (Version 2)
Quarter: 2024Q4

REPORT INFORMATION
  Report Type: Report from Study
  Country: US (occurrence: US)
  Receive Date: 20240915
  Receipt Date: 20241015
  Transmission Date: 20250114
  Serious: No
  Sender: SUNOVION
  Company Number: US-SUMITOMO PHARMA SWITZERLAND GMBH-2024SPA002184

PATIENT

DRUGS (14)
  1. ORGOVYX [Suspect]
     Active Substance: RELUGOLIX
     Indication: Prostate cancer
     Dosage: 360 MG, SINGLE
     Route: 048
     Dates: start: 20240827, end: 20240827
  2. ORGOVYX [Suspect]
     Active Substance: RELUGOLIX
     Dosage: 120 MG, QD
     Route: 048
     Dates: start: 20240828
  3. ATORVASTATIN [Concomitant]
     Active Substance: ATORVASTATIN
     Route: 065
  4. AZELASTINE [Concomitant]
     Active Substance: AZELASTINE
     Route: 065
  5. CARVEDILOL [Concomitant]
     Active Substance: CARVEDILOL
     Route: 065
  6. CELEBREX [Concomitant]
     Active Substance: CELECOXIB
     Route: 065
  7. ELIQUIS [Concomitant]
     Active Substance: APIXABAN
  8. FLUTICASONE [Concomitant]
     Active Substance: FLUTICASONE
     Route: 065
  9. MECLIZINE [Concomitant]
     Active Substance: MECLIZINE HYDROCHLORIDE
     Route: 065
  10. MULTAQ [Concomitant]
     Active Substance: DRONEDARONE
     Route: 065
  11. PANTOPRAZOLE [Concomitant]
     Active Substance: PANTOPRAZOLE
     Route: 065
  12. VITAMIN D3 [Concomitant]
     Active Substance: CHOLECALCIFEROL
     Route: 065
  13. XTANDI [Concomitant]
     Active Substance: ENZALUTAMIDE
     Dosage: 360 MG, SINGLE
     Route: 048
     Dates: start: 20240827, end: 20240827
  14. XTANDI [Concomitant]
     Active Substance: ENZALUTAMIDE
     Dosage: 120 MG, QD
     Route: 048
     Dates: start: 20240828

REACTIONS (2)
  - Fatigue [Recovered/Resolved]
  - Product dose omission issue [Unknown]

NARRATIVE: CASE EVENT DATE: 20240827
